FAERS Safety Report 5141436-3 (Version None)
Quarter: 2006Q4

REPORT INFORMATION
  Report Type: 
  Country: None (occurrence: None)
  Receive Date: 20061101
  Receipt Date: 20061026
  Transmission Date: 20070319
  Serious: Yes (Other)
  Sender: FDA-Public Use
  Company Number: US-JNJFOC-20061006565

PATIENT

DRUGS (11)
  1. PEPCID AC [Suspect]
  2. PEPCID AC [Suspect]
     Indication: DRUG USE FOR UNKNOWN INDICATION
  3. NEXIUM [Interacting]
     Indication: GASTROOESOPHAGEAL REFLUX DISEASE
  4. TOPROL-XL [Interacting]
     Indication: DRUG USE FOR UNKNOWN INDICATION
  5. AMBIEN [Interacting]
     Indication: DRUG USE FOR UNKNOWN INDICATION
  6. ZOCOR [Interacting]
     Indication: DRUG USE FOR UNKNOWN INDICATION
  7. LEXAPRO [Interacting]
     Indication: DRUG USE FOR UNKNOWN INDICATION
  8. DIAZIDE [Interacting]
  9. IRON [Interacting]
  10. CALCIUM [Interacting]
  11. MULTI-VITAMIN [Interacting]

REACTIONS (3)
  - DRUG INTERACTION [None]
  - INSOMNIA [None]
  - SPEECH DISORDER [None]
